FAERS Safety Report 10332107 (Version 1)
Quarter: 2014Q3

REPORT INFORMATION
  Report Type: Spontaneous
  Country: US (occurrence: None)
  Receive Date: 20140721
  Receipt Date: 20140721
  Transmission Date: 20150326
  Serious: No
  Sender: FDA-Public Use
  Company Number: None

PATIENT
  Age: 56 Year
  Sex: Female

DRUGS (1)
  1. MIRALAX [Suspect]
     Active Substance: POLYETHYLENE GLYCOL 3350
     Indication: COLONOSCOPY
     Dosage: 8.3 OZ IN 64 OZ CLEAR FLUID, 8 OZ. EVERY 15 MIN., TAKEN BY MOUTH
     Route: 048
     Dates: start: 20140714, end: 20140714

REACTIONS (6)
  - Dehydration [None]
  - Malaise [None]
  - Headache [None]
  - Nausea [None]
  - Asthenia [None]
  - Dysuria [None]

NARRATIVE: CASE EVENT DATE: 20140715
